FAERS Safety Report 8423081-7 (Version None)
Quarter: 2012Q2

REPORT INFORMATION
  Report Type: 
  Country: None (occurrence: None)
  Receive Date: 20120608
  Receipt Date: 20120605
  Transmission Date: 20120825
  Serious: Yes (Life-Threatening, Hospitalization)
  Sender: FDA-Public Use
  Company Number: US-CELGENEUS-163-21880-12031082

PATIENT
  Sex: Male

DRUGS (11)
  1. DECADRON [Concomitant]
     Dosage: 2 MILLIGRAM
     Route: 048
  2. LANTUS [Concomitant]
     Dosage: 10 IU (INTERNATIONAL UNIT)
     Route: 065
  3. PREDNISONE TAB [Concomitant]
     Route: 065
  4. REVLIMID [Suspect]
     Indication: MULTIPLE MYELOMA
     Dosage: 25 MILLIGRAM
     Route: 048
     Dates: start: 20120216, end: 20120220
  5. SUCRALFATE [Concomitant]
     Dosage: 1 GRAM
     Route: 048
  6. PERCOCET [Concomitant]
     Indication: PAIN
     Route: 065
  7. ZANTAC [Concomitant]
     Dosage: 150 MILLIGRAM
     Route: 048
  8. CARAFATE [Concomitant]
     Route: 065
  9. OXYCONTIN [Concomitant]
     Route: 065
  10. PROTONIX [Concomitant]
     Dosage: 40 MILLIGRAM
     Route: 048
  11. AUGMENTIN [Concomitant]
     Indication: BRONCHITIS
     Dosage: 875 MILLIGRAM
     Route: 048

REACTIONS (4)
  - ATRIAL FIBRILLATION [None]
  - RENAL FAILURE [None]
  - PANCYTOPENIA [None]
  - HEPATIC FAILURE [None]
